FAERS Safety Report 17488179 (Version 4)
Quarter: 2020Q2

REPORT INFORMATION
  Report Type: Spontaneous
  Country: US (occurrence: US)
  Receive Date: 20200303
  Receipt Date: 20200610
  Transmission Date: 20200713
  Serious: No
  Sender: FDA-Public Use
  Company Number: US-PFIZER INC-2019137860

PATIENT
  Age: 60 Year
  Sex: Female
  Weight: 147.4 kg

DRUGS (3)
  1. GENOTROPIN [Suspect]
     Active Substance: SOMATROPIN
     Dosage: 0.6 MG, DAILY
  2. GENOTROPIN [Suspect]
     Active Substance: SOMATROPIN
     Indication: HYPOPITUITARISM
     Dosage: 0.4 MG, 1X/DAY (INJECTION NIGHTLY/DAILY)
     Route: 058
     Dates: start: 201707
  3. GENOTROPIN [Suspect]
     Active Substance: SOMATROPIN
     Indication: ENDOCRINE DISORDER
     Dosage: 4 MG, DAILY (4 MG DAILY BY INJECTION)
     Route: 058
     Dates: start: 201707

REACTIONS (4)
  - Psychiatric symptom [Unknown]
  - Intentional product use issue [Unknown]
  - Wrong technique in device usage process [Unknown]
  - Product dose omission [Unknown]

NARRATIVE: CASE EVENT DATE: 20200201
